FAERS Safety Report 18053165 (Version 1)
Quarter: 2020Q3

REPORT INFORMATION
  Report Type: Spontaneous
  Country: AU (occurrence: AU)
  Receive Date: 20200722
  Receipt Date: 20200722
  Transmission Date: 20201103
  Serious: Yes (Other)
  Sender: FDA-Public Use
  Company Number: NVSC2020AU203603

PATIENT
  Sex: Female

DRUGS (1)
  1. TRAMETINIB [Suspect]
     Active Substance: TRAMETINIB
     Indication: GLIOMA
     Dosage: 0.5 MG, QD
     Route: 048

REACTIONS (6)
  - Headache [Unknown]
  - Brain neoplasm [Unknown]
  - Gait disturbance [Unknown]
  - Strabismus [Unknown]
  - Nail bed bleeding [Unknown]
  - Dry skin [Unknown]

NARRATIVE: CASE EVENT DATE: 201705
